FAERS Safety Report 8249981-9 (Version None)
Quarter: 2012Q2

REPORT INFORMATION
  Report Type: 
  Country: None (occurrence: None)
  Receive Date: 20120402
  Receipt Date: 20120322
  Transmission Date: 20120825
  Serious: Yes (Other)
  Sender: FDA-Public Use
  Company Number: JP-ASTRAZENECA-2012SE12535

PATIENT
  Age: 41 Year
  Sex: Female

DRUGS (4)
  1. SEROQUEL [Suspect]
     Route: 048
  2. MEILAX [Concomitant]
     Route: 048
  3. XALATAN [Concomitant]
     Route: 001
  4. NIZORAL [Concomitant]

REACTIONS (1)
  - LOSS OF CONSCIOUSNESS [None]
